FAERS Safety Report 6792223-1 (Version None)
Quarter: 2010Q2

REPORT INFORMATION
  Report Type: 
  Country: None (occurrence: None)
  Receive Date: 20100624
  Receipt Date: 20100614
  Transmission Date: 20101027
  Serious: Yes (Other)
  Sender: FDA-Public Use
  Company Number: BR-GENENTECH-303112

PATIENT
  Sex: Female

DRUGS (2)
  1. MABTHERA [Suspect]
     Indication: VASCULITIS CEREBRAL
     Dosage: UNK
     Route: 065
  2. MABTHERA [Suspect]
     Indication: MULTIPLE SCLEROSIS

REACTIONS (1)
  - GENERAL PHYSICAL HEALTH DETERIORATION [None]
